FAERS Safety Report 12731668 (Version 4)
Quarter: 2017Q1

REPORT INFORMATION
  Report Type: Spontaneous
  Country: US (occurrence: US)
  Receive Date: 20160912
  Receipt Date: 20170210
  Transmission Date: 20170428
  Serious: No
  Sender: FDA-Public Use
  Company Number: ALCN2016US006252

PATIENT
  Age: 71 Year
  Sex: Male
  Weight: 68.27 kg

DRUGS (6)
  1. LIPITOR [Concomitant]
     Active Substance: ATORVASTATIN CALCIUM
     Indication: BLOOD CHOLESTEROL
     Dosage: 10 MG, QD
     Route: 048
  2. COZAAR [Concomitant]
     Active Substance: LOSARTAN POTASSIUM
     Indication: BLOOD PRESSURE MEASUREMENT
     Dosage: (100/25 MG DAILY)
     Route: 048
  3. TIMOLOL. [Suspect]
     Active Substance: TIMOLOL
     Dosage: 1 GTT, QD
     Route: 047
  4. TIMOLOL. [Suspect]
     Active Substance: TIMOLOL
     Indication: GLAUCOMA
     Dosage: UNK
     Route: 047
  5. SIMBRINZA [Suspect]
     Active Substance: BRIMONIDINE TARTRATE\BRINZOLAMIDE
     Indication: GLAUCOMA
     Route: 047
  6. HUMULIN NOS [Concomitant]
     Active Substance: INSULIN HUMAN
     Indication: DIABETES MELLITUS
     Dosage: UNK
     Route: 058

REACTIONS (12)
  - Eye pruritus [Recovering/Resolving]
  - Nasal congestion [Recovering/Resolving]
  - Sinus congestion [Recovering/Resolving]
  - Nasopharyngitis [Recovering/Resolving]
  - Condition aggravated [Not Recovered/Not Resolved]
  - Foreign body sensation in eyes [Unknown]
  - Throat irritation [Unknown]
  - Eye pain [Unknown]
  - Eye irritation [Not Recovered/Not Resolved]
  - Visual acuity reduced [Unknown]
  - Cough [Recovering/Resolving]
  - Product quality issue [Unknown]
